FAERS Safety Report 7270039-X (Version None)
Quarter: 2011Q1

REPORT INFORMATION
  Report Type: 
  Country: None (occurrence: None)
  Receive Date: 20110202
  Receipt Date: 20110125
  Transmission Date: 20110831
  Serious: Yes (Hospitalization, Other)
  Sender: FDA-Public Use
  Company Number: US-ROCHE-755844

PATIENT
  Sex: Female
  Weight: 69.1 kg

DRUGS (14)
  1. OMEPRAZOLE [Concomitant]
  2. DORZOLAMIDE EYE DROPS [Concomitant]
  3. SPIRIVA [Concomitant]
     Dosage: SPIRIVA INHALER
  4. CITALOPRAM [Concomitant]
  5. AMLODIPINE [Concomitant]
  6. BONIVA [Suspect]
     Indication: OSTEOPOROSIS
     Dosage: FREQUENCY: QUARTERLY
     Route: 042
  7. MECLIZINE [Concomitant]
  8. METFORMIN [Concomitant]
  9. TRAVATAN [Concomitant]
     Dosage: EYE DROPS
  10. HYDROXYCHLOROQUINE [Concomitant]
  11. HYDROCHLOROTHIAZIDE [Concomitant]
  12. LEVOTHROID [Concomitant]
  13. PREDNISONE [Concomitant]
  14. CELEBREX [Concomitant]

REACTIONS (4)
  - FALL [None]
  - PELVIC FRACTURE [None]
  - PAIN IN EXTREMITY [None]
  - LOWER LIMB FRACTURE [None]
